FAERS Safety Report 6044918-5 (Version None)
Quarter: 2009Q1

REPORT INFORMATION
  Report Type: 
  Country: None (occurrence: None)
  Receive Date: 20090116
  Receipt Date: 20090116
  Transmission Date: 20090719
  Serious: Yes (Life-Threatening, Hospitalization)
  Sender: FDA-Public Use
  Company Number: None

PATIENT
  Age: 63 Year
  Sex: Female
  Weight: 99.7913 kg

DRUGS (6)
  1. PROZAC [Suspect]
     Indication: BIPOLAR DISORDER
     Dosage: VARIED OVER TIME VARIED ALL INFO FROM MY JOURNALS AND MEMORIES
  2. DEPAKOTE [Suspect]
     Indication: BIPOLAR DISORDER
     Dosage: VARIED OVER TIME VARIED ALL INFO FROM MY JOURNALS AND MEMORIES
  3. PAXIL [Suspect]
     Indication: BIPOLAR DISORDER
     Dosage: VARIED OVER TIME VARIED ALL INFO FROM MY JOURNALS AND MEMORIES
  4. EFFEXOR [Suspect]
     Indication: BIPOLAR DISORDER
     Dosage: VARIED OVER TIME VARIED ALL INFO FROM MY JOURNALS AND MEMORIES
  5. RITALIN [Suspect]
     Indication: BIPOLAR DISORDER
     Dosage: VARIED OVER TIME VARIED ALL INFO FROM MY JOURNALS AND MEMORIES
  6. ZOLOFT [Suspect]
     Indication: BIPOLAR DISORDER
     Dosage: VARIED OVER TIME VARIED ALL INFO FROM MY JOURNALS AND MEMORIES

REACTIONS (9)
  - ARTHRITIS [None]
  - CARDIAC FAILURE CONGESTIVE [None]
  - DEPRESSION [None]
  - GAIT DISTURBANCE [None]
  - MENTAL DISORDER [None]
  - STRESS [None]
  - TREMOR [None]
  - WALKING AID USER [None]
  - WEIGHT INCREASED [None]
